FAERS Safety Report 5661833-7 (Version None)
Quarter: 2008Q1

REPORT INFORMATION
  Report Type: 
  Country: None (occurrence: None)
  Receive Date: 20080306
  Receipt Date: 20080225
  Transmission Date: 20080703
  Serious: Yes (Hospitalization)
  Sender: FDA-Public Use
  Company Number: CHNY2008DK01016

PATIENT
  Sex: Female

DRUGS (2)
  1. NICOTINE [Suspect]
     Indication: SMOKING CESSATION THERAPY
     Dosage: 40-80 MG A DAY,CHEWED
     Dates: start: 19940101, end: 20040101
  2. NICOTINE [Suspect]
     Indication: SMOKING CESSATION THERAPY
     Dosage: 40-80 MG A DAY,CHEWED
     Dates: start: 20060101

REACTIONS (3)
  - COLITIS ULCERATIVE [None]
  - NICOTINE DEPENDENCE [None]
  - OVERDOSE [None]
